FAERS Safety Report 7197164-6 (Version None)
Quarter: 2010Q4

REPORT INFORMATION
  Report Type: 
  Country: None (occurrence: None)
  Receive Date: 20101224
  Receipt Date: 20101210
  Transmission Date: 20110411
  Serious: Yes (Disabling)
  Sender: FDA-Public Use
  Company Number: PHHY2010SE83890

PATIENT
  Sex: Female

DRUGS (1)
  1. FEMARA [Suspect]
     Indication: BREAST CANCER
     Dosage: 2.5 MG
     Route: 048
     Dates: start: 20090801

REACTIONS (6)
  - BURNOUT SYNDROME [None]
  - DYSPNOEA [None]
  - FATIGUE [None]
  - INFECTION SUSCEPTIBILITY INCREASED [None]
  - MUSCULAR WEAKNESS [None]
  - MYALGIA [None]
